FAERS Safety Report 24883900 (Version 1)
Quarter: 2025Q1

REPORT INFORMATION
  Report Type: Spontaneous
  Country: FR (occurrence: FR)
  Receive Date: 20250124
  Receipt Date: 20250124
  Transmission Date: 20250409
  Serious: Yes (Hospitalization)
  Sender: BRACCO
  Company Number: None

PATIENT
  Age: 89 Year
  Sex: Male

DRUGS (3)
  1. IOMERON [Suspect]
     Active Substance: IOMEPROL
     Indication: Computerised tomogram abdomen
     Route: 042
     Dates: start: 20241216, end: 20241216
  2. IOMERON [Suspect]
     Active Substance: IOMEPROL
     Indication: Computerised tomogram abdomen
     Route: 042
     Dates: start: 20241211, end: 20241211
  3. PRISTINAMYCIN [Suspect]
     Active Substance: PRISTINAMYCIN
     Indication: Erysipelas
     Dosage: 1G 3 TIMES /DAY
     Route: 048
     Dates: start: 20241213, end: 20241215

REACTIONS (2)
  - Rash maculo-papular [Recovered/Resolved]
  - Eosinophilia [Recovered/Resolved]

NARRATIVE: CASE EVENT DATE: 20241215
